FAERS Safety Report 25862467 (Version 1)
Quarter: 2025Q3

REPORT INFORMATION
  Report Type: Spontaneous
  Country: US (occurrence: US)
  Receive Date: 20250930
  Receipt Date: 20250930
  Transmission Date: 20251020
  Serious: Yes (Life-Threatening, Hospitalization, Other)
  Sender: BAXTER
  Company Number: US-MLMSERVICE-20250917-PI648942-00175-2

PATIENT
  Age: 63 Year
  Sex: Male

DRUGS (3)
  1. HEPARIN SODIUM [Suspect]
     Active Substance: HEPARIN SODIUM
     Indication: Truncus coeliacus thrombosis
     Route: 065
  2. HEPARIN SODIUM [Suspect]
     Active Substance: HEPARIN SODIUM
     Indication: Splenic artery thrombosis
  3. PROTAMINE SULFATE [Concomitant]
     Active Substance: PROTAMINE SULFATE
     Indication: Procoagulant therapy
     Route: 042

REACTIONS (3)
  - Encephalopathy [Unknown]
  - Subdural haematoma [Unknown]
  - Disorientation [Unknown]
